FAERS Safety Report 12726263 (Version 2)
Quarter: 2016Q3

REPORT INFORMATION
  Report Type: Report from Study
  Country: PL (occurrence: PL)
  Receive Date: 20160908
  Receipt Date: 20160914
  Transmission Date: 20161109
  Serious: Yes (Hospitalization, Other)
  Sender: FDA-Public Use
  Company Number: PL-BRISTOL-MYERS SQUIBB COMPANY-BMS-2016-073349

PATIENT
  Age: 35 Year
  Sex: Male
  Weight: 77.2 kg

DRUGS (3)
  1. NIVOLUMAB [Suspect]
     Active Substance: NIVOLUMAB
     Indication: HAEMATOLOGICAL MALIGNANCY
     Dosage: 273 MG, Q2WK
     Route: 042
     Dates: start: 20160802
  2. EXTERNAL-IBRUTINIB [Suspect]
     Active Substance: IBRUTINIB
     Indication: HAEMATOLOGICAL MALIGNANCY
     Dosage: 560 MG, QD
     Route: 048
     Dates: start: 20160802
  3. TRAMAL [Concomitant]
     Active Substance: TRAMADOL
     Indication: BONE PAIN
     Dosage: 100 MG, QD
     Route: 048

REACTIONS (1)
  - Arthritis bacterial [Not Recovered/Not Resolved]

NARRATIVE: CASE EVENT DATE: 20160823
